FAERS Safety Report 5742291-0 (Version None)
Quarter: 2008Q2

REPORT INFORMATION
  Report Type: 
  Country: None (occurrence: None)
  Receive Date: 20080514
  Receipt Date: 20080514
  Transmission Date: 20081010
  Serious: Yes (Hospitalization, Other)
  Sender: FDA-Public Use
  Company Number: None

PATIENT
  Age: 90 Year
  Sex: Male
  Weight: 81.6475 kg

DRUGS (1)
  1. DIGITEK MYLAN [Suspect]
     Indication: CARDIAC DISORDER
     Dosage: 125MG 1X A DAY PO
     Route: 048
     Dates: start: 20080401, end: 20080427

REACTIONS (8)
  - ASTHENIA [None]
  - DYSPNOEA [None]
  - FALL [None]
  - HYPERTENSION [None]
  - MALAISE [None]
  - MYOCARDIAL INFARCTION [None]
  - OVERDOSE [None]
  - PHARMACEUTICAL PRODUCT COMPLAINT [None]
